FAERS Safety Report 13437333 (Version 1)
Quarter: 2017Q2

REPORT INFORMATION
  Report Type: Spontaneous
  Country: US (occurrence: US)
  Receive Date: 20170413
  Receipt Date: 20170413
  Transmission Date: 20170830
  Serious: Yes (Other)
  Sender: FDA-Public Use
  Company Number: US-BRACCO-014568

PATIENT
  Age: 56 Year
  Sex: Female

DRUGS (1)
  1. READI-CAT [Suspect]
     Active Substance: BARIUM SULFATE
     Indication: COMPUTERISED TOMOGRAM ABDOMEN
     Route: 050
     Dates: start: 20160603, end: 20160603

REACTIONS (4)
  - Back pain [Recovering/Resolving]
  - Computerised tomogram abnormal [Recovering/Resolving]
  - Procedural complication [Recovering/Resolving]
  - Vomiting [Recovering/Resolving]

NARRATIVE: CASE EVENT DATE: 20160603
